FAERS Safety Report 5197751-0 (Version None)
Quarter: 2006Q4

REPORT INFORMATION
  Report Type: 
  Country: None (occurrence: None)
  Receive Date: 20061228
  Receipt Date: 20061214
  Transmission Date: 20070319
  Serious: Yes (Other)
  Sender: FDA-Public Use
  Company Number: 2006RR-04948

PATIENT
  Sex: Male

DRUGS (9)
  1. CIPROFLOXACIN [Suspect]
     Indication: URINARY TRACT INFECTION
  2. ASPIRIN [Concomitant]
  3. CO-DYDRAMOL [Concomitant]
  4. DUTASTERIDE [Concomitant]
  5. LACTULOSE [Concomitant]
  6. LISINOPRIL [Concomitant]
  7. METFORMIN HCL [Concomitant]
  8. TEMAZEPAM [Concomitant]
  9. TRIMETHOPRIM [Concomitant]

REACTIONS (3)
  - APHASIA [None]
  - CONVULSION [None]
  - HEMIPARESIS [None]
